FAERS Safety Report 9670719 (Version 1)
Quarter: 2013Q4

REPORT INFORMATION
  Report Type: Spontaneous
  Country: US (occurrence: US)
  Receive Date: 20131106
  Receipt Date: 20131106
  Transmission Date: 20140711
  Serious: Yes (Death)
  Sender: FDA-Public Use
  Company Number: US-TEVA-442009USA

PATIENT
  Age: 57 Year
  Sex: Female

DRUGS (1)
  1. ACTIQ [Suspect]
     Dates: start: 20130919, end: 20131007

REACTIONS (1)
  - Death [Fatal]
